FAERS Safety Report 9158919 (Version 1)
Quarter: 2013Q1

REPORT INFORMATION
  Report Type: Spontaneous
  Country: US (occurrence: US)
  Receive Date: 20130313
  Receipt Date: 20130313
  Transmission Date: 20140127
  Serious: Yes (Other)
  Sender: FDA-Public Use
  Company Number: US-BIOGENIDEC-2013BI023661

PATIENT
  Sex: Female
  Weight: 62 kg

DRUGS (6)
  1. AVONEX [Suspect]
     Indication: RELAPSING-REMITTING MULTIPLE SCLEROSIS
     Route: 030
     Dates: start: 19990420
  2. AVONEX [Suspect]
     Indication: RELAPSING-REMITTING MULTIPLE SCLEROSIS
     Route: 030
  3. PAXIL [Concomitant]
     Route: 048
  4. NASONEX [Concomitant]
  5. STEROIDS (NOS) [Concomitant]
     Route: 042
  6. STEROIDS (NOS) [Concomitant]
     Route: 048

REACTIONS (1)
  - Hysterectomy [Unknown]
